FAERS Safety Report 21124818 (Version 2)
Quarter: 2022Q3

REPORT INFORMATION
  Report Type: Report from Study
  Country: US (occurrence: US)
  Receive Date: 20220725
  Receipt Date: 20220824
  Transmission Date: 20221026
  Serious: Yes (Hospitalization, Other)
  Sender: FDA-Public Use
  Company Number: US-GILEAD-2022-0590870

PATIENT
  Sex: Male

DRUGS (3)
  1. AMBRISENTAN [Suspect]
     Active Substance: AMBRISENTAN
     Indication: Pulmonary hypertension
     Dosage: 5 MG, QD
     Route: 048
     Dates: start: 20220410
  2. ELIQUIS [Concomitant]
     Active Substance: APIXABAN
  3. SILDENAFIL [Concomitant]
     Active Substance: SILDENAFIL

REACTIONS (3)
  - COVID-19 [Recovering/Resolving]
  - Pulmonary hypertension [Unknown]
  - Dizziness [Unknown]
